FAERS Safety Report 10171096 (Version 1)
Quarter: 2014Q2

REPORT INFORMATION
  Report Type: Spontaneous
  Country: GB (occurrence: GB)
  Receive Date: 20140514
  Receipt Date: 20140514
  Transmission Date: 20141212
  Serious: Yes (Hospitalization)
  Sender: FDA-Public Use
  Company Number: PHHY2014GB055111

PATIENT
  Age: 71 Year
  Sex: Female

DRUGS (3)
  1. 5-FLUOROURACIL [Suspect]
     Indication: PANCREATIC CARCINOMA
  2. OXALIPLATIN [Concomitant]
     Indication: PANCREATIC CARCINOMA
  3. IRINOTECAN [Concomitant]
     Indication: PANCREATIC CARCINOMA

REACTIONS (27)
  - Toxicity to various agents [Recovered/Resolved]
  - Chest pain [Recovered/Resolved]
  - Oral pain [Recovered/Resolved]
  - Weight decreased [Recovered/Resolved]
  - Aphagia [Recovered/Resolved]
  - Blood creatinine increased [Recovered/Resolved]
  - Blood albumin increased [Recovered/Resolved]
  - Abnormal faeces [Recovered/Resolved]
  - Blood potassium increased [Recovered/Resolved]
  - Melaena [Recovered/Resolved]
  - Neutropenic sepsis [Recovered/Resolved]
  - Mucosal ulceration [Recovered/Resolved]
  - Gastrointestinal ulcer [Recovered/Resolved]
  - Mucosal inflammation [Recovered/Resolved]
  - Pyrexia [Recovered/Resolved]
  - Haemoglobin decreased [Recovered/Resolved]
  - White blood cell count decreased [Recovered/Resolved]
  - Neutropenia [Recovered/Resolved]
  - C-reactive protein increased [Recovered/Resolved]
  - Nausea [Recovered/Resolved]
  - Vomiting [Recovered/Resolved]
  - Diarrhoea [Recovered/Resolved]
  - Dehydration [Recovered/Resolved]
  - Tachycardia [Recovered/Resolved]
  - Orthostatic hypotension [Recovered/Resolved]
  - Alopecia [Recovered/Resolved]
  - Thrombocytopenia [Recovered/Resolved]
